FAERS Safety Report 4526847-9 (Version None)
Quarter: 2004Q4

REPORT INFORMATION
  Report Type: 
  Country: None (occurrence: None)
  Receive Date: 20041213
  Receipt Date: 20041130
  Transmission Date: 20050328
  Serious: Yes (Other)
  Sender: FDA-Public Use
  Company Number: 2004100788

PATIENT
  Age: 60 Year
  Sex: Male

DRUGS (3)
  1. CELEBREX [Suspect]
     Indication: OSTEOARTHRITIS
     Dosage: 200 MG (200 MG, 1 IN 1 D), ORAL
     Route: 048
     Dates: start: 20041108, end: 20041114
  2. ASPIRIN [Concomitant]
  3. ALPRAZOLAM [Concomitant]

REACTIONS (3)
  - DYSPNOEA [None]
  - FREQUENT BOWEL MOVEMENTS [None]
  - MYALGIA [None]
